FAERS Safety Report 4411424-0 (Version None)
Quarter: 2004Q2

REPORT INFORMATION
  Report Type: 
  Country: None (occurrence: None)
  Receive Date: 20040630
  Receipt Date: 20040330
  Transmission Date: 20050107
  Serious: No
  Sender: FDA-Public Use
  Company Number: 04P-163-0252259-00

PATIENT
  Age: 56 Year
  Sex: Female
  Weight: 71.6683 kg

DRUGS (9)
  1. HUMIRA [Suspect]
     Indication: RHEUMATOID ARTHRITIS
     Dosage: 40 MG, 1 IN 2 WK, SUBCUTANEOUS
     Route: 058
     Dates: start: 20040211, end: 20040301
  2. LEVOTHYROXINE SODIUM [Concomitant]
  3. PREDNISONE [Concomitant]
  4. PAROXETINE HYDROCHLORIDE [Concomitant]
  5. VERAPAMIL HYDROCHLORIDE [Concomitant]
  6. DOXEPIN HCL [Concomitant]
  7. LORAZEPAM [Concomitant]
  8. VICODIN [Concomitant]
  9. IMITREX [Concomitant]

REACTIONS (3)
  - INJECTION SITE ERYTHEMA [None]
  - PAIN IN EXTREMITY [None]
  - VISION BLURRED [None]
